FAERS Safety Report 9398540 (Version 2)
Quarter: 2013Q3

REPORT INFORMATION
  Report Type: Report from Study
  Country: FR (occurrence: FR)
  Receive Date: 20130712
  Receipt Date: 20130813
  Transmission Date: 20140515
  Serious: Yes (Other)
  Sender: FDA-Public Use
  Company Number: FR-BRISTOL-MYERS SQUIBB COMPANY-19097849

PATIENT
  Age: 74 Year
  Sex: 0

DRUGS (1)
  1. ERBITUX SOLN FOR INF [Suspect]
     Indication: HEAD AND NECK CANCER METASTATIC
     Route: 042
     Dates: start: 20120221, end: 20130312

REACTIONS (1)
  - Infarction [Unknown]
